FAERS Safety Report 24404723 (Version 1)
Quarter: 2024Q4

REPORT INFORMATION
  Report Type: Report from Study
  Country: MX (occurrence: MX)
  Receive Date: 20241007
  Receipt Date: 20241007
  Transmission Date: 20250115
  Serious: No
  Sender: ROCHE
  Company Number: MX-ROCHE-3528666

PATIENT
  Age: 48 Year
  Sex: Female

DRUGS (1)
  1. GAZYVA [Suspect]
     Active Substance: OBINUTUZUMAB
     Indication: Chronic lymphocytic leukaemia
     Dosage: FREQUENCY: DAY 1, 2, 8 AND 15 (CYCLE 1)
     Route: 042
     Dates: start: 20240312

REACTIONS (1)
  - Chills [Unknown]
